FAERS Safety Report 6673785-1 (Version None)
Quarter: 2010Q2

REPORT INFORMATION
  Report Type: 
  Country: None (occurrence: None)
  Receive Date: 20100408
  Receipt Date: 20100406
  Transmission Date: 20101027
  Serious: Yes (Life-Threatening, Other)
  Sender: FDA-Public Use
  Company Number: DE-GILEAD-2010-0028162

PATIENT
  Sex: Male
  Weight: 68 kg

DRUGS (12)
  1. TRUVADA [Suspect]
     Indication: HIV INFECTION
     Route: 048
     Dates: start: 20091027, end: 20100225
  2. TRUVADA [Suspect]
     Dates: start: 20090701, end: 20090902
  3. TRUVADA [Suspect]
     Dates: start: 20061201, end: 20070301
  4. KALETRA [Concomitant]
     Indication: HIV INFECTION
     Route: 048
     Dates: start: 20091027, end: 20100225
  5. TRIZIVIR [Concomitant]
     Indication: HIV INFECTION
     Route: 048
     Dates: start: 20090903, end: 20091026
  6. NOVAMINSULFON [Concomitant]
     Indication: PAIN
     Route: 048
     Dates: start: 20090801
  7. TILIDIN [Concomitant]
     Indication: PAIN
     Route: 048
     Dates: start: 20090801, end: 20091116
  8. FLUCONAZOLE [Concomitant]
     Indication: PROPHYLAXIS
     Route: 048
  9. COTRIM [Concomitant]
     Indication: DEPRESSION
     Route: 048
  10. PROMETHAZINE [Concomitant]
     Indication: DEPRESSION
     Route: 048
     Dates: end: 20100120
  11. MIRTAZAPINE [Concomitant]
     Indication: DEPRESSION
     Route: 048
     Dates: end: 20100201
  12. SEROQUEL [Concomitant]
     Indication: DEPRESSION
     Route: 048

REACTIONS (2)
  - ANAEMIA [None]
  - PANCYTOPENIA [None]
